FAERS Safety Report 15369743 (Version 1)
Quarter: 2018Q3

REPORT INFORMATION
  Report Type: Spontaneous
  Country: US (occurrence: US)
  Receive Date: 20180904
  Receipt Date: 20180904
  Transmission Date: 20181010
  Serious: Yes (Disabling, Other)
  Sender: FDA-Public Use
  Company Number: None

PATIENT
  Age: 23 Year
  Sex: Female
  Weight: 64.35 kg

DRUGS (2)
  1. GIANVI [Suspect]
     Active Substance: DROSPIRENONE\ETHINYL ESTRADIOL
     Indication: CONTRACEPTION
     Dates: start: 20180902, end: 20180902
  2. FLUOXETINE KARICA/VIORELE [Concomitant]

REACTIONS (17)
  - Anxiety [None]
  - Feeling guilty [None]
  - Depression [None]
  - Hypersomnia [None]
  - Abnormal behaviour [None]
  - Visual brightness [None]
  - Intrusive thoughts [None]
  - Panic attack [None]
  - Hypophagia [None]
  - Dyspnoea [None]
  - Tremor [None]
  - Nausea [None]
  - Feeling abnormal [None]
  - Diarrhoea [None]
  - Mental disorder [None]
  - Suicidal ideation [None]
  - Thinking abnormal [None]

NARRATIVE: CASE EVENT DATE: 20180902
